FAERS Safety Report 4900535-9 (Version None)
Quarter: 2006Q1

REPORT INFORMATION
  Report Type: 
  Country: None (occurrence: None)
  Receive Date: 20060127
  Receipt Date: 20051004
  Transmission Date: 20060701
  Serious: Yes (Hospitalization)
  Sender: FDA-Public Use
  Company Number: CLOF-10109

PATIENT
  Age: 46 Year
  Sex: Male

DRUGS (7)
  1. CLOLAR [Suspect]
     Indication: MULTIPLE MYELOMA
     Dosage: 4 MG/M2 QD X 5 IV
     Route: 042
     Dates: start: 20050627, end: 20050812
  2. PREVACID [Concomitant]
  3. PRILOSEC [Concomitant]
  4. COUMADIN [Concomitant]
  5. ATENOLOL [Concomitant]
  6. XANAX [Concomitant]
  7. OXYCODONE [Concomitant]

REACTIONS (8)
  - CONDITION AGGRAVATED [None]
  - EPISTAXIS [None]
  - HEADACHE [None]
  - MASS [None]
  - NAUSEA [None]
  - NEOPLASM MALIGNANT [None]
  - PAIN [None]
  - THROMBOCYTOPENIA [None]
